FAERS Safety Report 16265463 (Version 1)
Quarter: 2019Q2

REPORT INFORMATION
  Report Type: Spontaneous
  Country: US (occurrence: US)
  Receive Date: 20190502
  Receipt Date: 20190502
  Transmission Date: 20190711
  Serious: Yes (Death)
  Sender: FDA-Public Use
  Company Number: US-OTSUKA-2019_015531

PATIENT

DRUGS (2)
  1. SAPACITABINE [Suspect]
     Active Substance: SAPACITABINE
     Indication: ACUTE MYELOID LEUKAEMIA
     Dosage: 300 MG, BID X 3 DAYS/WEEK FOR 2 WEEKS (EVEN CYCLES)
     Route: 048
  2. DECITABINE. [Suspect]
     Active Substance: DECITABINE
     Indication: ACUTE MYELOID LEUKAEMIA
     Dosage: UNK, (ALTERNATING 4 WEEK CYCLES (ODD CYCLES))
     Route: 065

REACTIONS (1)
  - Colitis [Fatal]
